FAERS Safety Report 4779888-0 (Version None)
Quarter: 2005Q3

REPORT INFORMATION
  Report Type: 
  Country: None (occurrence: None)
  Receive Date: 20050914
  Receipt Date: 20050502
  Transmission Date: 20060218
  Serious: Yes (Hospitalization)
  Sender: FDA-Public Use
  Company Number: 163-20785-05050053

PATIENT
  Age: 47 Year
  Sex: Male
  Weight: 73 kg

DRUGS (2)
  1. THALOMID [Suspect]
     Indication: AMYOTROPHIC LATERAL SCLEROSIS
     Dosage: 100-300MG, ORAL
     Route: 048
     Dates: start: 20050302, end: 20050416
  2. BACLOFEN (BACLOFEN) (TABLETS) [Concomitant]

REACTIONS (2)
  - CONSTIPATION [None]
  - RASH [None]
